FAERS Safety Report 7901363-2 (Version None)
Quarter: 2011Q4

REPORT INFORMATION
  Report Type: 
  Country: None (occurrence: None)
  Receive Date: 20111108
  Receipt Date: 20111103
  Transmission Date: 20120403
  Serious: Yes (Hospitalization, Other)
  Sender: FDA-Public Use
  Company Number: US-PFIZER INC-2011056922

PATIENT
  Sex: Female

DRUGS (46)
  1. NOVOLIN R [Concomitant]
     Dosage: EVERY FOUR HOURS
     Route: 058
     Dates: start: 20101019, end: 20101218
  2. LOPRESSOR [Concomitant]
     Dosage: 50 MG, 2X/DAY
     Route: 048
     Dates: start: 20101019, end: 20110117
  3. REGLAN [Concomitant]
     Indication: NAUSEA
     Dosage: 10 MG, EVERY 6 HR/PRN
     Route: 042
     Dates: start: 20101019, end: 20101218
  4. PROMETHAZINE [Concomitant]
     Indication: NAUSEA
     Dosage: 25 MG,  EVERY 4 HOURS/PRN
     Route: 042
     Dates: start: 20101105, end: 20110109
  5. BISMUTH SUBSALICYLATE [Concomitant]
     Dosage: 20- 30 ML
     Dates: start: 20101105, end: 20110117
  6. VANCOMYCIN [Concomitant]
     Dosage: 1000 MG,EVERY 12 HR
     Route: 042
     Dates: start: 20101105, end: 20101124
  7. BENADRYL [Concomitant]
     Indication: URTICARIA
  8. MILK OF MAGNESIA TAB [Concomitant]
     Indication: CONSTIPATION
     Dosage: 30 ML, AT BED TIME/PRN
     Route: 048
     Dates: start: 20101110, end: 20110109
  9. RESTORIL [Concomitant]
     Indication: SLEEP DISORDER
     Dosage: 15 MG, AT BED TIME /PRN
     Route: 048
     Dates: start: 20101110, end: 20110109
  10. CEREBYX [Concomitant]
     Dosage: 100 MG, EVERY 6 HOURS
     Route: 042
     Dates: start: 20101019, end: 20101218
  11. PEPCID [Concomitant]
     Dosage: 20 MG, 2X/DAY
     Route: 048
     Dates: start: 20101020, end: 20110121
  12. NORMODYNE [Concomitant]
     Dosage: Q20M
     Route: 042
     Dates: start: 20101019, end: 20110117
  13. ATIVAN [Concomitant]
     Dosage: 0.5 MG, 4X/DAY/PRN
     Dates: start: 20101019, end: 20110117
  14. CHRONULAC [Concomitant]
     Dosage: 15 ML, 3X/DAY
     Route: 048
     Dates: start: 20101105, end: 20110101
  15. ROBITUSSIN WITH CODEINE [Concomitant]
     Indication: COUGH
     Dosage: 10 ML, EVERY 4 HR
     Route: 048
     Dates: start: 20101105, end: 20110117
  16. LOPERAMIDE [Concomitant]
     Indication: DIARRHOEA
     Dosage: 2 MG, EVERY 4 HR
     Route: 048
     Dates: start: 20101105, end: 20110117
  17. ALTEPLASE [Concomitant]
     Dosage: 2 MG, UNK
     Route: 042
     Dates: start: 20101105, end: 20110117
  18. MORPHINE [Concomitant]
     Indication: PAIN
     Dosage: 4 MG, EVERY 3 HOURS/PRN
     Route: 042
     Dates: start: 20101110, end: 20101120
  19. ZOFRAN [Concomitant]
     Indication: NAUSEA
     Dosage: 32 MG, EVERY 24 HOURS /PRN
     Route: 042
     Dates: start: 20101110, end: 20110109
  20. PROCTOFOAM [Concomitant]
     Dosage: EVERY 6 HR/PRN
     Dates: start: 20101105, end: 20110117
  21. MULTI-VITAMINS [Concomitant]
     Dosage: ONE TABLET, DAILY
     Route: 048
     Dates: start: 20101019, end: 20110120
  22. NORCO [Concomitant]
     Indication: PAIN
     Dosage: 5/325 MG   EVERY 4 HR/PRN
     Route: 048
     Dates: start: 20101105, end: 20101128
  23. AMBIEN [Concomitant]
     Indication: SLEEP DISORDER
     Dosage: 5 MG, AT BED TIME 1-2 TABLETS
     Route: 048
     Dates: start: 20101105, end: 20110104
  24. DARVOCET-N 50 [Concomitant]
     Indication: PAIN
     Dosage: 1-2 TABLETS EVERY FOUR HR
     Route: 048
     Dates: start: 20101110, end: 20101120
  25. PRAVACHOL [Concomitant]
     Dosage: 40 MG, AT BED TIME
     Route: 048
     Dates: start: 20101105, end: 20110109
  26. OCEAN [Concomitant]
     Dosage: 1 SPRAY EVERY 4 HR/PRN
     Dates: start: 20101105, end: 20110117
  27. DILANTIN [Suspect]
     Dosage: 200 MG, 2X/DAY
     Route: 048
     Dates: start: 20101020, end: 20110109
  28. DECADRON [Concomitant]
     Dosage: 4 MG, 4X/DAY
     Route: 042
     Dates: start: 20101019, end: 20101218
  29. TYLENOL-500 [Concomitant]
     Indication: HEADACHE
     Dosage: 650 MG, EVERY FOUR HOURS/PRN
     Route: 048
     Dates: start: 20101019, end: 20110121
  30. ALDACTONE [Concomitant]
     Dosage: 50 MG, DAILY
     Route: 048
     Dates: start: 20101020, end: 20110110
  31. PRILOSEC [Concomitant]
     Dosage: 20 MG, AFTER BREAK FAST
     Route: 048
     Dates: start: 20101020, end: 20110118
  32. ISOPTO TEARS [Concomitant]
     Dosage: UNK, EVERY 4 HR/PRN
     Dates: start: 20101105, end: 20110117
  33. TESSALON [Concomitant]
     Indication: COUGH
     Dosage: 100 MG, 3X/DAY
     Route: 048
     Dates: start: 20101105, end: 20110117
  34. MAGNESIUM SULFATE [Concomitant]
     Dosage: 1 G, AS NEEDED
     Route: 042
     Dates: start: 20101106, end: 20110105
  35. LEVAQUIN [Concomitant]
     Dosage: 750 MG,DAILY
     Route: 042
     Dates: start: 20101105, end: 20101119
  36. DILANTIN [Suspect]
     Indication: CONVULSION
     Dosage: 300 MG, 1X/DAY
     Route: 048
     Dates: start: 20101019, end: 20101218
  37. BENADRYL [Concomitant]
     Indication: PRURITUS
     Dosage: 25 MG, EVERY 2 HRS/PRN
     Route: 042
     Dates: start: 20101105, end: 20110117
  38. DECADRON [Concomitant]
     Dosage: 2 MG, 2X/DAY
     Route: 048
     Dates: start: 20101105, end: 20110109
  39. PEPCID [Concomitant]
     Dosage: 20 MG, EVERY 12 HR
     Route: 048
     Dates: start: 20101019, end: 20101219
  40. TYLENOL-500 [Concomitant]
     Indication: PAIN
  41. NORCO [Concomitant]
     Dosage: 7.5/325 MG
     Dates: start: 20101110, end: 20101120
  42. DILAUDID [Concomitant]
     Indication: PAIN
     Dosage: EVERY 3 HR/PRN
     Route: 042
     Dates: start: 20101105, end: 20101115
  43. MAGNESIUM HYDROXIDE TAB [Concomitant]
     Indication: DYSPEPSIA
     Dosage: 15 ML,EVERY 3 HR/PRN
     Route: 048
     Dates: start: 20101110, end: 20110109
  44. MAGNESIUM GLUCONATE [Concomitant]
     Dosage: 500 MG, EVERY 6 HOURS
     Route: 048
     Dates: start: 20101019, end: 20110110
  45. APRESOLINE [Concomitant]
     Dosage: 10 MG,EVERY HR/PRN
     Route: 042
     Dates: start: 20101019, end: 20101218
  46. PERIDEX [Concomitant]
     Dosage: AS NEEDED
     Dates: start: 20101105, end: 20110117

REACTIONS (1)
  - STEVENS-JOHNSON SYNDROME [None]
